FAERS Safety Report 5716897-9 (Version None)
Quarter: 2008Q2

REPORT INFORMATION
  Report Type: 
  Country: None (occurrence: None)
  Receive Date: 20080424
  Receipt Date: 20080422
  Transmission Date: 20081010
  Serious: Yes (Hospitalization)
  Sender: FDA-Public Use
  Company Number: ES-BOEHRINGER INGELHEIM GMBH, GERMANY-2008-ES-00553ES

PATIENT
  Age: 85 Year
  Sex: Female

DRUGS (1)
  1. MIRAPEXIN [Suspect]
     Indication: RESTLESS LEGS SYNDROME
     Route: 048
     Dates: start: 20070314, end: 20080312

REACTIONS (2)
  - CONFUSIONAL STATE [None]
  - SOMNOLENCE [None]
